FAERS Safety Report 5266936-7 (Version None)
Quarter: 2007Q1

REPORT INFORMATION
  Report Type: 
  Country: None (occurrence: None)
  Receive Date: 20070316
  Receipt Date: 20070305
  Transmission Date: 20070707
  Serious: Yes (Other)
  Sender: FDA-Public Use
  Company Number: PHBS2007AT03714

PATIENT
  Age: 80 Year
  Sex: Female
  Weight: 55 kg

DRUGS (4)
  1. LESCOL [Suspect]
     Indication: HYPERCHOLESTEROLAEMIA
     Dosage: 80 MG, UNK
     Route: 048
     Dates: start: 20061221
  2. INHIBACE PLUS /SCH/ [Concomitant]
     Indication: HYPERTENSION
     Route: 048
  3. THYREX [Concomitant]
     Indication: GOITRE
     Dosage: 0.1 MG, QD
     Route: 048
  4. PANTOPRAZOLE SODIUM [Concomitant]
     Indication: OESOPHAGITIS
     Dosage: 20 MG, QD
     Route: 048

REACTIONS (9)
  - ALANINE AMINOTRANSFERASE INCREASED [None]
  - ASPARTATE AMINOTRANSFERASE INCREASED [None]
  - BLOOD BILIRUBIN INCREASED [None]
  - CARBOHYDRATE ANTIGEN 19-9 INCREASED [None]
  - GAMMA-GLUTAMYLTRANSFERASE INCREASED [None]
  - GASTROINTESTINAL CARCINOMA [None]
  - HEPATITIS C POSITIVE [None]
  - LIVER FUNCTION TEST ABNORMAL [None]
  - TUMOUR MARKER INCREASED [None]
